FAERS Safety Report 7270010-8 (Version None)
Quarter: 2011Q1

REPORT INFORMATION
  Report Type: 
  Country: None (occurrence: None)
  Receive Date: 20110202
  Receipt Date: 20110120
  Transmission Date: 20110831
  Serious: Yes (Hospitalization)
  Sender: FDA-Public Use
  Company Number: BE-ELI_LILLY_AND_COMPANY-BE201101005144

PATIENT
  Sex: Male
  Weight: 73 kg

DRUGS (9)
  1. CISPLATIN [Suspect]
     Indication: NON-SMALL CELL LUNG CANCER
     Dosage: 135 MG, UNK
     Dates: start: 20110104
  2. ZOFRAN [Concomitant]
     Indication: PROPHYLAXIS OF NAUSEA AND VOMITING
     Dates: start: 20110104, end: 20110104
  3. IBRUPROFEN [Concomitant]
     Indication: CHEST PAIN
     Dates: start: 20101115
  4. COVERSYL [Concomitant]
     Indication: HYPERTENSION
     Dates: start: 20101228
  5. DAFALGAN [Concomitant]
     Indication: CHEST PAIN
     Dosage: UNK, AS NEEDED
     Dates: start: 20101101
  6. NECITUMUMAB (11F8) (LY3012211) [Suspect]
     Indication: NON-SMALL CELL LUNG CANCER
     Dosage: 800 MG, UNK
     Dates: start: 20110104
  7. MEDROL [Concomitant]
     Indication: CHEST PAIN
     Dates: start: 20101115
  8. HYPAN [Concomitant]
     Indication: HYPERTENSION
     Dates: start: 20101115, end: 20101227
  9. GEMCITABINE HYDROCHLORIDE [Suspect]
     Indication: NON-SMALL CELL LUNG CANCER
     Dosage: 2300 MG, UNK
     Dates: start: 20110104

REACTIONS (8)
  - HAEMATOCRIT DECREASED [None]
  - DIARRHOEA [None]
  - RED BLOOD CELL COUNT DECREASED [None]
  - HAEMATOCHEZIA [None]
  - HAEMOGLOBIN DECREASED [None]
  - NEUTROPENIA [None]
  - RASH [None]
  - THROMBOCYTOPENIA [None]
